FAERS Safety Report 25710595 (Version 1)
Quarter: 2025Q3

REPORT INFORMATION
  Report Type: Spontaneous
  Country: US (occurrence: None)
  Receive Date: 20250820
  Receipt Date: 20250820
  Transmission Date: 20251020
  Serious: No
  Sender: FDA-CTU
  Company Number: None

PATIENT
  Age: 68 Year
  Sex: Female

DRUGS (1)
  1. TYRVAYA [Suspect]
     Active Substance: VARENICLINE TARTRATE

REACTIONS (3)
  - Paranasal sinus discomfort [None]
  - Headache [None]
  - Burning sensation [None]

NARRATIVE: CASE EVENT DATE: 20250819
